FAERS Safety Report 7522729-9 (Version None)
Quarter: 2011Q2

REPORT INFORMATION
  Report Type: 
  Country: None (occurrence: None)
  Receive Date: 20110603
  Receipt Date: 20110527
  Transmission Date: 20111010
  Serious: Yes (Disabling, Other)
  Sender: FDA-Public Use
  Company Number: GB-PFIZER INC-2011006500

PATIENT
  Sex: Female

DRUGS (2)
  1. GABAPENTIN [Suspect]
     Dosage: 3 CAPSULES PER DAY AS NEEDED
  2. GABAPENTIN [Suspect]
     Indication: NEURALGIA
     Dosage: 300 MG, 3X/DAY
     Dates: start: 20091229

REACTIONS (17)
  - GAIT DISTURBANCE [None]
  - DYSPHONIA [None]
  - OROPHARYNGEAL PAIN [None]
  - NIGHTMARE [None]
  - DRUG INEFFECTIVE [None]
  - BALANCE DISORDER [None]
  - MALAISE [None]
  - RHINITIS [None]
  - NAUSEA [None]
  - BACK PAIN [None]
  - IMMOBILE [None]
  - HYPERSOMNIA [None]
  - DIZZINESS [None]
  - DEHYDRATION [None]
  - URINARY INCONTINENCE [None]
  - INSOMNIA [None]
  - HEADACHE [None]
